FAERS Safety Report 23034531 (Version 1)
Quarter: 2023Q4

REPORT INFORMATION
  Report Type: Spontaneous
  Country: IT (occurrence: IT)
  Receive Date: 20231005
  Receipt Date: 20231005
  Transmission Date: 20240110
  Serious: Yes (Other)
  Sender: FDA-Public Use
  Company Number: IT-SA-2023SA293859

PATIENT
  Age: 67 Year
  Sex: Female

DRUGS (1)
  1. DUPILUMAB [Suspect]
     Active Substance: DUPILUMAB
     Indication: Chronic rhinosinusitis with nasal polyps
     Dosage: UNK

REACTIONS (6)
  - Morphoea [Recovering/Resolving]
  - Rash [Recovering/Resolving]
  - Paradoxical drug reaction [Recovering/Resolving]
  - Skin plaque [Recovering/Resolving]
  - Scleroderma [Recovering/Resolving]
  - Rash erythematous [Recovering/Resolving]
